FAERS Safety Report 10029362 (Version 3)
Quarter: 2014Q1

REPORT INFORMATION
  Report Type: Report from Study
  Country: US (occurrence: US)
  Receive Date: 20140322
  Receipt Date: 20140326
  Transmission Date: 20141002
  Serious: Yes (Hospitalization)
  Sender: FDA-Public Use
  Company Number: PHEH2014US003048

PATIENT
  Age: 1 Year
  Sex: Male

DRUGS (3)
  1. TOBI [Suspect]
     Indication: SLEEP APNOEA SYNDROME
     Dosage: 1 DF (300MG/5ML), BID
     Route: 055
  2. TOBI [Suspect]
     Indication: TRACHEOSTOMY
  3. TOBI [Suspect]
     Indication: TRACHEITIS

REACTIONS (5)
  - Hypercapnia [Recovered/Resolved]
  - Respiratory distress [Recovered/Resolved]
  - Cough [Recovered/Resolved]
  - Pyrexia [Recovered/Resolved]
  - Drug administered to patient of inappropriate age [Unknown]
